FAERS Safety Report 9193381 (Version 3)
Quarter: 2013Q3

REPORT INFORMATION
  Report Type: Report from Study
  Country: ES (occurrence: ES)
  Receive Date: 20130327
  Receipt Date: 20130920
  Transmission Date: 20140515
  Serious: Yes (Life-Threatening, Hospitalization, Disabling)
  Sender: FDA-Public Use
  Company Number: ES-ROCHE-1178329

PATIENT
  Age: 82 Year
  Sex: Male
  Weight: 65.2 kg

DRUGS (17)
  1. BLINDED TOCILIZUMAB [Suspect]
     Indication: RHEUMATOID ARTHRITIS
     Dosage: DATE OF MOST RECENT DOSE: 17/OCT/2011
     Route: 042
     Dates: start: 20110530
  2. BLINDED TOCILIZUMAB [Suspect]
     Indication: RHEUMATOID ARTHRITIS
     Dosage: DATE OF MOST RECENT DOSE: 09/NOV/2011
     Route: 058
     Dates: start: 20110530
  3. TOCILIZUMAB [Suspect]
     Indication: RHEUMATOID ARTHRITIS
     Dosage: DATE OF MOST RECENT DOSE: 07/JAN/2013
     Route: 058
     Dates: start: 20111121
  4. METHOTREXATE [Suspect]
     Indication: RHEUMATOID ARTHRITIS
     Route: 048
     Dates: start: 20090421, end: 20130108
  5. FOLIC ACID [Concomitant]
     Indication: RHEUMATOID ARTHRITIS
     Route: 048
     Dates: start: 20090120
  6. ESPIRONOLACTONA [Concomitant]
     Route: 048
     Dates: start: 20100629
  7. HYDROXYCHLOROQUINE [Concomitant]
     Indication: RHEUMATOID ARTHRITIS
     Route: 048
     Dates: start: 20081201
  8. DIGOXIN-SPECIFIC ANTIBODY FRAGMENTS [Concomitant]
     Route: 048
     Dates: start: 20070918, end: 20130109
  9. CHOLECALCIFEROL [Concomitant]
     Indication: RHEUMATOID ARTHRITIS
     Route: 048
     Dates: start: 20001201
  10. SOLIFENACIN SUCCINATE [Concomitant]
     Route: 048
     Dates: start: 20010405
  11. FUROSEMIDE [Concomitant]
     Route: 048
     Dates: start: 20090518, end: 20130109
  12. ACENOCOUMAROL [Concomitant]
     Route: 048
     Dates: start: 200709, end: 20130108
  13. TORASEMIDE [Concomitant]
     Route: 048
     Dates: start: 20070918
  14. DILTIAZEM HYDROCHLORIDE [Concomitant]
     Route: 048
     Dates: start: 20090518
  15. PANTOPRAZOL [Concomitant]
     Route: 048
     Dates: start: 20100429, end: 20130109
  16. PANTOPRAZOL [Concomitant]
     Route: 048
     Dates: start: 20130118
  17. TAMSULOSIN HYDROCHLORIDE [Concomitant]
     Route: 048
     Dates: start: 20070918

REACTIONS (2)
  - Respiratory failure [Recovered/Resolved]
  - Pneumonia [Recovered/Resolved]
